FAERS Safety Report 16011637 (Version 1)
Quarter: 2019Q1

REPORT INFORMATION
  Report Type: Spontaneous
  Country: CN (occurrence: CN)
  Receive Date: 20190227
  Receipt Date: 20190227
  Transmission Date: 20190418
  Serious: Yes (Death)
  Sender: FDA-Public Use
  Company Number: CN-ROCHE-2268924

PATIENT
  Sex: Female

DRUGS (17)
  1. AVASTIN [Suspect]
     Active Substance: BEVACIZUMAB
     Route: 065
     Dates: start: 201609, end: 201701
  2. OXALIPLATIN. [Concomitant]
     Active Substance: OXALIPLATIN
     Route: 065
     Dates: start: 201609, end: 201701
  3. FLUOROURACIL. [Concomitant]
     Active Substance: FLUOROURACIL
     Indication: ADENOCARCINOMA OF COLON
     Dosage: 2.4/M2 CONTINUOUS INFUSION 48HOURS
     Route: 065
     Dates: start: 20150331, end: 20150730
  4. APATINIB [Concomitant]
     Active Substance: APATINIB
     Indication: ADENOCARCINOMA OF COLON
     Route: 048
     Dates: start: 201702
  5. CALCIUM FOLINATE [Concomitant]
     Active Substance: LEUCOVORIN CALCIUM
     Indication: ADENOCARCINOMA OF COLON
     Route: 065
     Dates: start: 20150331, end: 20150630
  6. CALCIUM FOLINATE [Concomitant]
     Active Substance: LEUCOVORIN CALCIUM
     Route: 065
     Dates: start: 201511, end: 201602
  7. FLUOROURACIL. [Concomitant]
     Active Substance: FLUOROURACIL
     Dosage: 2.4/M2 CONTINUOUS INFUSION 48HOURS
     Route: 065
     Dates: start: 201609, end: 201701
  8. FLUOROURACIL. [Concomitant]
     Active Substance: FLUOROURACIL
     Dosage: 2.4/M2 CONTINUOUS INFUSION 48HOURS
     Route: 065
     Dates: start: 201509, end: 201510
  9. FLUOROURACIL. [Concomitant]
     Active Substance: FLUOROURACIL
     Dosage: 2.4/M2 CONTINUOUS INFUSION 48HOURS
     Route: 065
     Dates: start: 201511, end: 201602
  10. TEGAFUR [Concomitant]
     Active Substance: TEGAFUR
     Indication: ADENOCARCINOMA OF COLON
     Route: 065
     Dates: start: 201604, end: 201608
  11. IRINOTECAN [Concomitant]
     Active Substance: IRINOTECAN
     Indication: ADENOCARCINOMA OF COLON
     Route: 065
     Dates: start: 201511, end: 201602
  12. OXALIPLATIN. [Concomitant]
     Active Substance: OXALIPLATIN
     Indication: ADENOCARCINOMA OF COLON
     Route: 065
     Dates: start: 20150331, end: 20150630
  13. CALCIUM FOLINATE [Concomitant]
     Active Substance: LEUCOVORIN CALCIUM
     Route: 065
     Dates: start: 201509, end: 201510
  14. AVASTIN [Suspect]
     Active Substance: BEVACIZUMAB
     Route: 065
     Dates: start: 201511, end: 201602
  15. AVASTIN [Suspect]
     Active Substance: BEVACIZUMAB
     Indication: ADENOCARCINOMA OF COLON
     Route: 065
     Dates: start: 20150331, end: 20150630
  16. OXALIPLATIN. [Concomitant]
     Active Substance: OXALIPLATIN
     Route: 065
     Dates: start: 201509, end: 201510
  17. CALCIUM FOLINATE [Concomitant]
     Active Substance: LEUCOVORIN CALCIUM
     Route: 065
     Dates: start: 201609, end: 201701

REACTIONS (1)
  - Death [Fatal]
